FAERS Safety Report 7345333-4 (Version None)
Quarter: 2011Q1

REPORT INFORMATION
  Report Type: 
  Country: None (occurrence: None)
  Receive Date: 20110310
  Receipt Date: 20110302
  Transmission Date: 20110831
  Serious: Yes (Hospitalization, Disabling)
  Sender: FDA-Public Use
  Company Number: US-B.I. PHARMACEUTICALS,INC./RIDGEFIELD-2011-BP-01485BP

PATIENT
  Age: 72 Year
  Sex: Female
  Weight: 99.79 kg

DRUGS (11)
  1. PRADAXA [Suspect]
     Indication: ATRIAL FIBRILLATION
     Dosage: 300 MG
     Route: 048
     Dates: start: 20110112
  2. MOTRIN [Concomitant]
     Dates: start: 20090101
  3. VERAPAMIL [Concomitant]
     Dates: end: 20110117
  4. SIMVASTATIN [Concomitant]
     Dates: end: 20110117
  5. SYNTHROID [Concomitant]
     Dates: end: 20110117
  6. PRANDIN [Concomitant]
     Dates: end: 20110117
  7. LANTUS [Concomitant]
     Dates: end: 20110117
  8. ALLOPURINOL [Concomitant]
     Dates: end: 20110117
  9. METOLAZONE [Concomitant]
     Dates: end: 20110117
  10. LASIX [Concomitant]
     Dates: end: 20110117
  11. AVAPRO [Concomitant]
     Dates: end: 20110117

REACTIONS (11)
  - GASTROINTESTINAL HAEMORRHAGE [None]
  - RENAL FAILURE [None]
  - HEPATIC FAILURE [None]
  - MULTI-ORGAN FAILURE [None]
  - PERICARDIAL EFFUSION [None]
  - ISCHAEMIA [None]
  - HEPATIC ISCHAEMIA [None]
  - SHOCK [None]
  - PERICARDIAL HAEMORRHAGE [None]
  - HYPOTENSION [None]
  - IMPAIRED GASTRIC EMPTYING [None]
